FAERS Safety Report 9875891 (Version 1)
Quarter: 2014Q1

REPORT INFORMATION
  Report Type: Spontaneous
  Country: US (occurrence: US)
  Receive Date: 20140206
  Receipt Date: 20140206
  Transmission Date: 20141002
  Serious: No
  Sender: FDA-Public Use
  Company Number: US-ACORDA-ACO_36911_2013

PATIENT
  Sex: Female
  Weight: 79.37 kg

DRUGS (4)
  1. AMPYRA [Suspect]
     Indication: GAIT DISTURBANCE
     Dosage: 10 MG, BID
     Route: 048
     Dates: start: 201305, end: 20130624
  2. AMPYRA [Suspect]
     Indication: MULTIPLE SCLEROSIS
  3. GABAPENTIN [Concomitant]
     Indication: PAIN
     Dosage: UNK
  4. TEGRETOL [Concomitant]
     Indication: PAIN
     Dosage: UNK

REACTIONS (3)
  - Malaise [None]
  - Headache [Unknown]
  - Drug ineffective [Unknown]
